FAERS Safety Report 4738850-4 (Version None)
Quarter: 2005Q3

REPORT INFORMATION
  Report Type: 
  Country: None (occurrence: None)
  Receive Date: 20050804
  Receipt Date: 20050726
  Transmission Date: 20060218
  Serious: Yes (Other)
  Sender: FDA-Public Use
  Company Number: 2005107892

PATIENT
  Age: 40 Year
  Sex: Male

DRUGS (1)
  1. SOLU-CORTEF [Suspect]
     Indication: FACIAL PALSY
     Dosage: 500 MG, INTRAVENOUS
     Route: 042
     Dates: start: 20050726, end: 20050726

REACTIONS (1)
  - SHOCK [None]
